FAERS Safety Report 7845760 (Version 9)
Quarter: 2014Q2

REPORT INFORMATION
  Report Type: Report from Study
  Country: JP (occurrence: JP)
  Receive Date: 20110308
  Receipt Date: 20140416
  Transmission Date: 20141212
  Serious: Yes (Hospitalization, Other)
  Sender: FDA-Public Use
  Company Number: JP-ROCHE-757065

PATIENT
  Age: 74 Year
  Sex: Female
  Weight: 45 kg

DRUGS (10)
  1. RIBAVIRIN [Suspect]
     Indication: CHRONIC HEPATITIS C
     Route: 048
     Dates: start: 20100701, end: 20100817
  2. RIBAVIRIN [Suspect]
     Indication: CHRONIC HEPATITIS C
     Route: 048
     Dates: start: 20101222, end: 20110608
  3. PEG-INTERFERON ALFA 2A [Suspect]
     Indication: CHRONIC HEPATITIS C
     Route: 058
     Dates: start: 20100701, end: 20110210
  4. PEG-INTERFERON ALFA 2A [Suspect]
     Indication: CHRONIC HEPATITIS C
     Route: 058
     Dates: start: 20110325, end: 20110601
  5. LIVALO [Concomitant]
     Indication: CHRONIC HEPATITIS C
     Dosage: DOSAGE IS UNCERTAIN. PERORAL AGENT.
     Route: 048
     Dates: start: 20100701, end: 20110608
  6. TAKEPRON [Concomitant]
     Indication: PROPHYLAXIS
     Dosage: DOSAGE IS UNCERTAIN.
     Route: 048
     Dates: start: 2008, end: 20110608
  7. THYRADIN [Concomitant]
     Indication: HYPOTHYROIDISM
     Dosage: DOSAGE IS UNCERTAIN. PERORAL AGENT.
     Route: 048
     Dates: start: 2008, end: 20110608
  8. ALLELOCK [Concomitant]
     Indication: PROPHYLAXIS
     Dosage: DOSAGE IS UNCERTAIN. PERORAL AGENT.
     Route: 048
     Dates: start: 20100701, end: 20110608
  9. MUCOSTA [Concomitant]
     Indication: PROPHYLAXIS
     Dosage: DOSAGE IS UNCERTAIN. PERORAL AGENT.
     Route: 048
     Dates: start: 20100701, end: 20110608
  10. LOXONIN [Concomitant]
     Indication: PROPHYLAXIS
     Dosage: DOSAGE IS UNCERTAIN. PERORAL AGENT. SINGLE USE.
     Route: 048
     Dates: start: 201007, end: 20110608

REACTIONS (2)
  - Anaemia [Recovered/Resolved]
  - Fracture [Unknown]
